FAERS Safety Report 20562210 (Version 1)
Quarter: 2022Q1

REPORT INFORMATION
  Report Type: Report from Study
  Country: ZA (occurrence: ZA)
  Receive Date: 20220307
  Receipt Date: 20220307
  Transmission Date: 20220424
  Serious: Yes (Disabling, Other)
  Sender: FDA-Public Use
  Company Number: ZA-NOVARTISPH-NVSC2022ZA016040

PATIENT
  Age: 75 Year
  Sex: Male

DRUGS (2)
  1. BROLUCIZUMAB [Suspect]
     Active Substance: BROLUCIZUMAB
     Indication: Neovascular age-related macular degeneration
     Dosage: 27.6 MG, QMO
     Route: 047
     Dates: start: 20210521
  2. BROLUCIZUMAB [Suspect]
     Active Substance: BROLUCIZUMAB
     Dosage: 27.6 MG, QMO
     Route: 047
     Dates: start: 20220114

REACTIONS (3)
  - Visual impairment [Unknown]
  - Retinal haemorrhage [Unknown]
  - Retinal scar [Unknown]

NARRATIVE: CASE EVENT DATE: 20220114
